FAERS Safety Report 17291610 (Version 1)
Quarter: 2020Q1

REPORT INFORMATION
  Report Type: Spontaneous
  Country: RU (occurrence: RU)
  Receive Date: 20200121
  Receipt Date: 20200121
  Transmission Date: 20200409
  Serious: Yes (Other)
  Sender: FDA-Public Use
  Company Number: RU-BAYER-2019-214062

PATIENT
  Age: 40 Year
  Sex: Female
  Weight: 56 kg

DRUGS (3)
  1. MAGNESIUM;PYRIDOXINE [Concomitant]
     Dosage: UNK
  2. GLYCINE. [Concomitant]
     Active Substance: GLYCINE
     Dosage: UNK
  3. YARINA [Suspect]
     Active Substance: DROSPIRENONE\ETHINYL ESTRADIOL
     Indication: UTERINE LEIOMYOMA
     Dosage: UNK
     Route: 048
     Dates: start: 20191104, end: 2019

REACTIONS (5)
  - Off label use [None]
  - Product use in unapproved indication [None]
  - Nausea [Recovered/Resolved]
  - Blood pressure increased [Recovered/Resolved]
  - Blood pressure decreased [None]

NARRATIVE: CASE EVENT DATE: 201911
